FAERS Safety Report 6291542-5 (Version None)
Quarter: 2009Q3

REPORT INFORMATION
  Report Type: 
  Country: None (occurrence: None)
  Receive Date: 20090730
  Receipt Date: 20090717
  Transmission Date: 20100115
  Serious: Yes (Other)
  Sender: FDA-Public Use
  Company Number: US-ELI_LILLY_AND_COMPANY-US200907004182

PATIENT
  Sex: Female

DRUGS (26)
  1. CYMBALTA [Suspect]
     Indication: PAIN
     Dosage: 30 MG, 2/D
     Dates: start: 20090501, end: 20090707
  2. COUMADIN [Concomitant]
  3. REGLAN [Concomitant]
  4. LASIX [Concomitant]
  5. VALCYTE [Concomitant]
  6. GABAPENTIN [Concomitant]
  7. LOPRESSOR [Concomitant]
  8. HEPARIN SODIUM [Concomitant]
  9. PERCOCET [Concomitant]
  10. CYCLOSPORINE [Concomitant]
  11. PHOSLO [Concomitant]
  12. SYNTHROID [Concomitant]
  13. MEROPENEM [Concomitant]
  14. LIDODERM [Concomitant]
     Route: 062
  15. CARDIZEM [Concomitant]
  16. CELEXIB [Concomitant]
  17. PREDNISONE TAB [Concomitant]
  18. PROTONIX [Concomitant]
  19. FLAGYL [Concomitant]
  20. MULTI-VITAMIN [Concomitant]
  21. VITAMIN B6 [Concomitant]
  22. VITAMIN B-12 [Concomitant]
  23. FOLIC ACID [Concomitant]
  24. NYSTATIN [Concomitant]
  25. ATIVAN [Concomitant]
  26. ARANESP [Concomitant]

REACTIONS (2)
  - OFF LABEL USE [None]
  - RENAL FAILURE [None]
